FAERS Safety Report 6770808-6 (Version None)
Quarter: 2010Q2

REPORT INFORMATION
  Report Type: 
  Country: None (occurrence: None)
  Receive Date: 20100614
  Receipt Date: 20100614
  Transmission Date: 20101027
  Serious: Yes (Hospitalization)
  Sender: FDA-Public Use
  Company Number: None

PATIENT
  Sex: Male
  Weight: 93.8946 kg

DRUGS (1)
  1. ALEVE [Suspect]
     Indication: NEUROPATHY PERIPHERAL
     Dosage: 220 MG Q 12 HRS PO (BY MOUTH)
     Route: 048
     Dates: start: 20100418, end: 20100420

REACTIONS (1)
  - DRUG RASH WITH EOSINOPHILIA AND SYSTEMIC SYMPTOMS [None]
